FAERS Safety Report 16046098 (Version 1)
Quarter: 2019Q1

REPORT INFORMATION
  Report Type: Spontaneous
  Country: US (occurrence: US)
  Receive Date: 20190307
  Receipt Date: 20190307
  Transmission Date: 20190418
  Serious: No
  Sender: FDA-Public Use
  Company Number: US-AMGEN-USASP2019036070

PATIENT
  Sex: Female

DRUGS (10)
  1. METFORMIN HCL [Concomitant]
     Active Substance: METFORMIN HYDROCHLORIDE
     Dosage: 1000 MG, UNK
  2. VICTOZA [Concomitant]
     Active Substance: LIRAGLUTIDE
     Dosage: 18 MG, UNK
  3. CENTRUM [Concomitant]
     Active Substance: VITAMINS
     Dosage: UNK
  4. DEXAMETHASON [Concomitant]
     Active Substance: DEXAMETHASONE
     Dosage: 1-5 MG, UNK
  5. LISINOPRIL H [Concomitant]
     Dosage: 20-12.5 M
  6. PRAVASTATIN. [Concomitant]
     Active Substance: PRAVASTATIN
     Dosage: 40 MG, UNK
  7. TRADJENTA [Concomitant]
     Active Substance: LINAGLIPTIN
     Dosage: 5 MG, UNK
  8. ENBREL [Suspect]
     Active Substance: ETANERCEPT
     Indication: PSORIASIS
     Dosage: UNK
     Route: 065
  9. FISH OIL [Concomitant]
     Active Substance: FISH OIL
     Dosage: 1200 MG, UNK
  10. OTEZLA [Concomitant]
     Active Substance: APREMILAST
     Dosage: 30 MG, UNK

REACTIONS (2)
  - Pain [Recovered/Resolved]
  - Injection site pain [Recovered/Resolved]
